FAERS Safety Report 6029855-4 (Version None)
Quarter: 2009Q1

REPORT INFORMATION
  Report Type: 
  Country: None (occurrence: None)
  Receive Date: 20090106
  Receipt Date: 20090106
  Transmission Date: 20090719
  Serious: Yes (Life-Threatening)
  Sender: FDA-Public Use
  Company Number: None

PATIENT
  Sex: Female
  Weight: 74.8435 kg

DRUGS (1)
  1. PROPAFENONE HCL [Suspect]
     Indication: CARDIAC DISORDER
     Dosage: 3 X DAY
     Dates: start: 20081117, end: 20081227

REACTIONS (5)
  - CRYING [None]
  - DEPRESSION [None]
  - MUSCLE DISORDER [None]
  - PRODUCT QUALITY ISSUE [None]
  - SUICIDAL IDEATION [None]
